FAERS Safety Report 6313761-1 (Version None)
Quarter: 2009Q3

REPORT INFORMATION
  Report Type: 
  Country: None (occurrence: None)
  Receive Date: 20090818
  Receipt Date: 20081009
  Transmission Date: 20100115
  Serious: No
  Sender: FDA-Public Use
  Company Number: PR-BRISTOL-MYERS SQUIBB COMPANY-14364020

PATIENT
  Age: 51 Year
  Sex: Female

DRUGS (3)
  1. REYATAZ [Suspect]
     Dosage: TAKING FOR 2 YEARS
  2. LAMIVUDINE [Suspect]
     Dosage: TAKING FOR 2 YEARS
  3. ABACAVIR [Suspect]
     Dosage: TAKING FOR 2 YEARS

REACTIONS (1)
  - NEPHROLITHIASIS [None]
